FAERS Safety Report 4681028-3 (Version None)
Quarter: 2005Q2

REPORT INFORMATION
  Report Type: 
  Country: None (occurrence: None)
  Receive Date: 20050601
  Receipt Date: 20050519
  Transmission Date: 20051028
  Serious: Yes (Hospitalization)
  Sender: FDA-Public Use
  Company Number: 2004242407US

PATIENT
  Age: 53 Year
  Sex: Female
  Weight: 82.54 kg

DRUGS (7)
  1. CELEBREX [Suspect]
     Indication: OSTEOARTHRITIS
     Dosage: 200 MG (100 MG, 2 IN 1 D), ORAL
     Route: 048
     Dates: start: 20030101, end: 20030101
  2. TRAZODONE HCL [Concomitant]
  3. FLEXERIL [Concomitant]
  4. VALSARTAN [Concomitant]
  5. LASIX [Concomitant]
  6. XANAX [Concomitant]
  7. TUMS (CALCIUM CARBONATE) [Concomitant]

REACTIONS (2)
  - GASTRIC DILATATION [None]
  - VOMITING [None]
